FAERS Safety Report 5100083-X (Version None)
Quarter: 2006Q3

REPORT INFORMATION
  Report Type: 
  Country: None (occurrence: None)
  Receive Date: 20060731
  Receipt Date: 20060521
  Transmission Date: 20061208
  Serious: No
  Sender: FDA-Public Use
  Company Number: 2006PV014131

PATIENT
  Age: 60 Year
  Sex: Female

DRUGS (3)
  1. BYETTA [Suspect]
     Indication: DIABETES MELLITUS NON-INSULIN-DEPENDENT
     Dosage: 5 MCG;BID;SC
     Route: 058
     Dates: start: 20060501, end: 20060519
  2. ACTOS [Concomitant]
  3. GLIPIZIDE [Concomitant]

REACTIONS (2)
  - UNEVALUABLE EVENT [None]
  - VOMITING [None]
